FAERS Safety Report 7518764 (Version 3)
Quarter: 2013Q1

REPORT INFORMATION
  Report Type: Report from Study
  Country: US (occurrence: US)
  Receive Date: 20100802
  Receipt Date: 20130204
  Transmission Date: 20140127
  Serious: Yes (Hospitalization)
  Sender: FDA-Public Use
  Company Number: PHHO2010US11029

PATIENT
  Age: 78 Year
  Sex: Male
  Weight: 81.7 kg

DRUGS (14)
  1. AFINITOR [Suspect]
     Indication: MYELODYSPLASTIC SYNDROME
     Dosage: 0.5 MG, DAILY
     Route: 048
     Dates: start: 20100628
  2. AFINITOR [Suspect]
     Dosage: UNK
     Route: 048
     Dates: start: 20100714
  3. CGP 41251 [Suspect]
     Indication: MYELODYSPLASTIC SYNDROME
     Dosage: 50 MG, BID
     Route: 048
     Dates: start: 20100629
  4. CGP 41251 [Suspect]
     Dosage: UNK
     Route: 048
     Dates: start: 20100714
  5. ASPIRIN [Concomitant]
     Dosage: 81 MG, QD
     Route: 048
  6. COUMADIN [Concomitant]
     Dosage: 7.5 MG, QD
  7. FISH OIL [Concomitant]
     Dosage: 1 GM, UNK
     Route: 048
  8. LORAZEPAM [Concomitant]
     Dosage: 0.5 MG, QD
     Route: 048
  9. NIASPAN [Concomitant]
     Route: 048
  10. OCUVITE [Concomitant]
     Dosage: 1 DF, BID
     Route: 048
  11. PRAVASTATIN [Concomitant]
     Dosage: 80 MG, UNK
     Route: 048
  12. MULTIVITAMINS [Concomitant]
  13. TOPROL [Concomitant]
     Dosage: 100 MG, QD
     Route: 048
  14. ZYMAR [Concomitant]

REACTIONS (5)
  - Hypoxia [Recovered/Resolved]
  - Pneumonia [Unknown]
  - Pleural effusion [Unknown]
  - Lung consolidation [Unknown]
  - Dyspnoea [Unknown]
